FAERS Safety Report 23838699 (Version 2)
Quarter: 2024Q2

REPORT INFORMATION
  Report Type: Spontaneous
  Country: PT (occurrence: PT)
  Receive Date: 20240509
  Receipt Date: 20240514
  Transmission Date: 20240716
  Serious: Yes (Other)
  Sender: FDA-Public Use
  Company Number: PT-FreseniusKabi-FK202406482

PATIENT
  Age: 35 Year
  Sex: Male

DRUGS (8)
  1. CYTARABINE [Suspect]
     Active Substance: CYTARABINE
     Indication: Gene mutation
     Dosage: R-ESHAP REGIMEN3 CYCLES FOLLOWED BY A REINFORCED DOSE OF CYTARABINE
     Route: 065
     Dates: start: 2019
  2. CYTARABINE [Suspect]
     Active Substance: CYTARABINE
     Indication: Diffuse large B-cell lymphoma
  3. RITUXIMAB [Suspect]
     Active Substance: RITUXIMAB
     Indication: Gene mutation
     Dosage: R-ESHAP REGIMEN3 CYCLES
     Route: 065
     Dates: start: 2019
  4. ETOPOSIDE [Suspect]
     Active Substance: ETOPOSIDE
     Indication: Gene mutation
     Dosage: R-ESHAP REGIMEN3 CYCLES
     Route: 065
     Dates: start: 2019
  5. CISPLATIN [Suspect]
     Active Substance: CISPLATIN
     Indication: Gene mutation
     Dosage: R-ESHAP REGIMEN3 CYCLES
     Route: 065
     Dates: start: 2019
  6. METHYLPREDNISOLONE [Suspect]
     Active Substance: METHYLPREDNISOLONE
     Indication: Gene mutation
     Dosage: R-ESHAP REGIMEN3 CYCLES
     Route: 065
     Dates: start: 2019
  7. CARMUSTINE [Suspect]
     Active Substance: CARMUSTINE
     Indication: Follicular lymphoma
     Dosage: UNK
     Route: 065
  8. MELPHALAN [Suspect]
     Active Substance: MELPHALAN
     Indication: Follicular lymphoma
     Dosage: UNK
     Route: 065

REACTIONS (3)
  - Acute graft versus host disease [Recovered/Resolved]
  - Chronic graft versus host disease [Recovered/Resolved]
  - Cytomegalovirus infection reactivation [Recovered/Resolved]

NARRATIVE: CASE EVENT DATE: 20190101
